FAERS Safety Report 12067739 (Version 1)
Quarter: 2016Q1

REPORT INFORMATION
  Report Type: Spontaneous
  Country: US (occurrence: US)
  Receive Date: 20160211
  Receipt Date: 20160211
  Transmission Date: 20160526
  Serious: No
  Sender: FDA-Public Use
  Company Number: US-SMITH AND NEPHEW, INC-2015SMT00003

PATIENT
  Age: 67 Year
  Sex: Female
  Weight: 98.87 kg

DRUGS (7)
  1. ALTACE [Concomitant]
     Active Substance: RAMIPRIL
     Dosage: 10 MG, 2X/DAY
  2. REGRANEX [Suspect]
     Active Substance: BECAPLERMIN
     Indication: SKIN ULCER
     Dosage: UNK, 1X/DAY
     Route: 061
     Dates: start: 201412
  3. METOPROLOL ES [Concomitant]
     Dosage: 100 MG, 1X/DAY
  4. FENOFIBRATE. [Concomitant]
     Active Substance: FENOFIBRATE
     Dosage: 50 MG, 2X/DAY
  5. LEVEMIR [Concomitant]
     Active Substance: INSULIN DETEMIR
     Dosage: 50 IU, 2X/DAY
  6. ASPIRIN. [Concomitant]
     Active Substance: ASPIRIN
     Dosage: 81 MG, 1X/DAY
  7. NIACIN. [Concomitant]
     Active Substance: NIACIN
     Dosage: 250 MG, 1X/DAY

REACTIONS (2)
  - Application site erythema [Recovered/Resolved]
  - Application site pain [Recovered/Resolved]

NARRATIVE: CASE EVENT DATE: 201412
